FAERS Safety Report 6531859-X (Version None)
Quarter: 2010Q2

REPORT INFORMATION
  Report Type: 
  Country: None (occurrence: None)
  Receive Date: 20100108
  Receipt Date: 20091230
  Transmission Date: 20101027
  Serious: Yes (Other)
  Sender: FDA-Public Use
  Company Number: US-JNJFOC-20090907721

PATIENT
  Sex: Male
  Weight: 4.54 kg

DRUGS (8)
  1. CONCENTRATED TYLENOL INFANT DROPS [Suspect]
     Route: 048
  2. CONCENTRATED TYLENOL INFANT DROPS [Suspect]
     Indication: PYREXIA
     Dosage: UNKNOWN
     Route: 048
  3. CONCENTRATED TYLENOL INFANT DROPS [Suspect]
     Route: 048
  4. CONCENTRATED TYLENOL INFANT DROPS [Suspect]
     Indication: PYREXIA
     Dosage: AS NEEDED
     Route: 048
  5. CONCENTRATED TYLENOL INFANT DROPS [Suspect]
  6. CONCENTRATED TYLENOL INFANT DROPS [Suspect]
     Indication: PYREXIA
     Dosage: AS NEEDED
  7. MYLICON [Concomitant]
     Indication: FLATULENCE
  8. VITAMIN [Concomitant]
     Indication: MEDICAL DIET

REACTIONS (3)
  - INVESTIGATION [None]
  - THERAPEUTIC RESPONSE DECREASED [None]
  - TRANSMISSION OF AN INFECTIOUS AGENT VIA A MEDICINAL PRODUCT [None]
